FAERS Safety Report 7320894-X (Version None)
Quarter: 2011Q1

REPORT INFORMATION
  Report Type: 
  Country: None (occurrence: None)
  Receive Date: 20110228
  Receipt Date: 20110222
  Transmission Date: 20110831
  Serious: Yes (Other)
  Sender: FDA-Public Use
  Company Number: FR-MERCK-1102FRA00139

PATIENT
  Age: 42 Year
  Sex: Male

DRUGS (7)
  1. SULFAMETHOXAZOLE AND TRIMETHOPRIM [Concomitant]
     Indication: HIV INFECTION
     Route: 065
  2. PRAVASTATIN SODIUM [Concomitant]
     Route: 048
     Dates: start: 20070101
  3. EMTRICITABINE AND TENOFOVIR DISOPROXIL FUMARATE [Concomitant]
     Indication: HIV INFECTION
     Route: 065
  4. PRAVASTATIN SODIUM [Concomitant]
     Indication: TYPE IIA HYPERLIPIDAEMIA
     Route: 048
  5. RITONAVIR [Concomitant]
     Indication: HIV INFECTION
     Route: 065
  6. ZETIA [Suspect]
     Indication: TYPE IIA HYPERLIPIDAEMIA
     Route: 048
     Dates: start: 20101101, end: 20101101
  7. FOSAMPRENAVIR CALCIUM [Concomitant]
     Indication: HIV INFECTION
     Route: 065

REACTIONS (2)
  - RASH ERYTHEMATOUS [None]
  - PRURITUS [None]
